FAERS Safety Report 11359110 (Version 2)
Quarter: 2015Q3

REPORT INFORMATION
  Report Type: Report from Study
  Country: DE (occurrence: DE)
  Receive Date: 20150807
  Receipt Date: 20150902
  Transmission Date: 20151125
  Serious: Yes (Death)
  Sender: FDA-Public Use
  Company Number: DE-ACTELION-A-US2015-122185

PATIENT
  Age: 60 Year
  Sex: Male
  Weight: 127 kg

DRUGS (11)
  1. PANTOPRAZOLE [Concomitant]
     Active Substance: PANTOPRAZOLE SODIUM
  2. VENTAVIS [Suspect]
     Active Substance: ILOPROST
     Indication: PULMONARY ARTERIAL HYPERTENSION
     Dosage: 5 MCG, 6 TIMES DAILY
     Route: 055
     Dates: start: 20140311
  3. OXYGEN. [Concomitant]
     Active Substance: OXYGEN
  4. SIMVASTATIN. [Concomitant]
     Active Substance: SIMVASTATIN
  5. AQUAPHOR [Concomitant]
     Active Substance: PETROLATUM
  6. FUROSEMID [Concomitant]
     Active Substance: FUROSEMIDE
  7. ASPIRIN. [Concomitant]
     Active Substance: ASPIRIN
  8. VOLIBRIS [Concomitant]
     Active Substance: AMBRISENTAN
  9. ALLOPURINOL. [Concomitant]
     Active Substance: ALLOPURINOL
  10. KALINOR [Concomitant]
     Active Substance: POTASSIUM CITRATE
  11. REVATIO [Concomitant]
     Active Substance: SILDENAFIL CITRATE

REACTIONS (1)
  - Right ventricular failure [Fatal]

NARRATIVE: CASE EVENT DATE: 20150731
